FAERS Safety Report 4389831-0 (Version None)
Quarter: 2004Q2

REPORT INFORMATION
  Report Type: 
  Country: None (occurrence: None)
  Receive Date: 20040630
  Receipt Date: 20040622
  Transmission Date: 20050107
  Serious: Yes (Other)
  Sender: FDA-Public Use
  Company Number: 2004-06-0865

PATIENT
  Age: 54 Year
  Sex: Male

DRUGS (1)
  1. PEG-INTRON [Suspect]
     Indication: RENAL CELL CARCINOMA STAGE UNSPECIFIED
     Dosage: 100 MCG/WEEK
     Dates: start: 20040101

REACTIONS (3)
  - CEREBRAL HAEMORRHAGE [None]
  - METASTASES TO CENTRAL NERVOUS SYSTEM [None]
  - PEMPHIGOID [None]
